FAERS Safety Report 25037233 (Version 3)
Quarter: 2025Q1

REPORT INFORMATION
  Report Type: Spontaneous
  Country: US (occurrence: US)
  Receive Date: 20250304
  Receipt Date: 20250324
  Transmission Date: 20250408
  Serious: Yes (Other)
  Sender: PFIZER
  Company Number: US-PFIZER INC-PV202400040430

PATIENT
  Age: 78 Year
  Sex: Female
  Weight: 55.34 kg

DRUGS (3)
  1. PREMARIN [Suspect]
     Active Substance: ESTROGENS, CONJUGATED
     Indication: Inadequate lubrication
     Dosage: 0.625MG, SUPPOSED TO 1 TABLET TAKE EVERY DAY
  2. PREMARIN [Suspect]
     Active Substance: ESTROGENS, CONJUGATED
     Indication: Bone density abnormal
     Dosage: 0.625MG, TAKING IT EVERY OTHER DAY
     Dates: start: 202502
  3. IRBESARTAN [Concomitant]
     Active Substance: IRBESARTAN
     Indication: Hypertension
     Dosage: 1 DF, DAILY
     Route: 048

REACTIONS (4)
  - Glaucoma [Unknown]
  - Muscle spasms [Not Recovered/Not Resolved]
  - Off label use [Unknown]
  - Intentional product misuse [Unknown]

NARRATIVE: CASE EVENT DATE: 20250101
